FAERS Safety Report 9741904 (Version 1)
Quarter: 2013Q4

REPORT INFORMATION
  Report Type: Spontaneous
  Country: US (occurrence: US)
  Receive Date: 20131210
  Receipt Date: 20131210
  Transmission Date: 20140711
  Serious: Yes (Hospitalization)
  Sender: FDA-Public Use
  Company Number: US-009507513-1312USA003684

PATIENT
  Sex: Female

DRUGS (3)
  1. INTEGRILIN [Suspect]
     Indication: ACUTE CORONARY SYNDROME
     Dosage: UNKNOWN
     Route: 042
  2. PLAVIX [Concomitant]
  3. AGGRENOX [Concomitant]

REACTIONS (1)
  - Haemorrhage [Recovered/Resolved]
